FAERS Safety Report 7315099-2 (Version None)
Quarter: 2011Q1

REPORT INFORMATION
  Report Type: 
  Country: None (occurrence: None)
  Receive Date: 20110225
  Receipt Date: 20100413
  Transmission Date: 20110831
  Serious: No
  Sender: FDA-Public Use
  Company Number: US-MYLANLABS-2010S1006428

PATIENT
  Age: 18 Year
  Sex: Female

DRUGS (2)
  1. AMNESTEEM [Suspect]
     Indication: ACNE
     Dates: start: 20080101, end: 20091101
  2. BUPROPION HCL [Suspect]
     Indication: DEPRESSION
     Dates: end: 20091101

REACTIONS (1)
  - HEADACHE [None]
